FAERS Safety Report 9470094 (Version 2)
Quarter: 2013Q4

REPORT INFORMATION
  Report Type: Report from Study
  Country: JP (occurrence: JP)
  Receive Date: 20130822
  Receipt Date: 20131004
  Transmission Date: 20140711
  Serious: Yes (Hospitalization, Other)
  Sender: FDA-Public Use
  Company Number: JP-ASTELLAS-2013JP008567

PATIENT
  Age: 65 Year
  Sex: Female
  Weight: 47 kg

DRUGS (6)
  1. MIRABEGRON [Suspect]
     Indication: HYPERTONIC BLADDER
     Dosage: 50 MG, UID/QD
     Route: 048
     Dates: start: 20130614, end: 20130628
  2. JANUVIA [Concomitant]
     Indication: DIABETES MELLITUS
     Dosage: 50 MG, UNKNOWN/D
     Route: 048
  3. ATELEC [Concomitant]
     Indication: HYPERTENSION
     Dosage: 10 MG, UNKNOWN/D
     Route: 048
  4. MAGLAX [Concomitant]
     Indication: CONSTIPATION
     Dosage: 990 MG, UNKNOWN/D
     Route: 048
  5. ROZEREM [Concomitant]
     Indication: SCHIZOPHRENIA
     Dosage: 8 MG, UID/QD
     Route: 048
  6. LENDORMIN [Concomitant]
     Indication: SCHIZOPHRENIA
     Dosage: 0.25 MG, UID/QD
     Route: 048
     Dates: start: 20130614

REACTIONS (1)
  - Schizophrenia [Recovering/Resolving]
